FAERS Safety Report 8479442-3 (Version None)
Quarter: 2012Q2

REPORT INFORMATION
  Report Type: 
  Country: None (occurrence: None)
  Receive Date: 20120402
  Receipt Date: 20111123
  Transmission Date: 20120825
  Serious: Yes (Life-Threatening)
  Sender: FDA-Public Use
  Company Number: 2011ST000471

PATIENT
  Age: 18 Year
  Sex: Female
  Weight: 66.7 kg

DRUGS (10)
  1. ONCASPAR [Suspect]
     Indication: ACUTE LYMPHOCYTIC LEUKAEMIA
     Dosage: 4650 IU;X1;IV
     Route: 042
     Dates: start: 20111017, end: 20111017
  2. ONCASPAR [Suspect]
  3. COTRIMAXAZOLE [Concomitant]
  4. VINCRISTINE [Concomitant]
  5. DAUNORUBICIN HCL [Concomitant]
  6. ACYCLOVIR [Concomitant]
  7. PREDNISONE [Concomitant]
  8. ONDANSETRON [Concomitant]
  9. CEFEPIME [Concomitant]
  10. RANITIDINE [Concomitant]

REACTIONS (4)
  - WHEEZING [None]
  - HYPERSENSITIVITY [None]
  - CHEST DISCOMFORT [None]
  - COUGH [None]
